FAERS Safety Report 8199207-X (Version None)
Quarter: 2012Q1

REPORT INFORMATION
  Report Type: 
  Country: None (occurrence: None)
  Receive Date: 20120309
  Receipt Date: 20120308
  Transmission Date: 20120608
  Serious: Yes (Death, Hospitalization)
  Sender: FDA-Public Use
  Company Number: ES-JNJFOC-20110204683

PATIENT
  Age: 68 Year
  Sex: Female
  Weight: 82 kg

DRUGS (17)
  1. BUPRENORPHINE [Concomitant]
     Indication: ANALGESIC THERAPY
     Dates: start: 20100114
  2. MELOXICAM [Concomitant]
     Indication: PAIN
     Dates: start: 20060619
  3. INDOMETHACIN [Concomitant]
     Indication: RHEUMATOID ARTHRITIS
     Dates: start: 19940731
  4. TORSEMIDE [Concomitant]
     Indication: HYPERTENSION
     Route: 048
  5. CARDURA [Concomitant]
     Indication: HYPERTENSION
     Route: 048
  6. ATORVASTATIN CALCIUM [Concomitant]
     Indication: HYPERLIPIDAEMIA
     Route: 048
  7. DOXAZOSIN MESYLATE [Concomitant]
     Indication: HYPERTENSION
     Dates: start: 20070517
  8. ATORVASTATIN [Concomitant]
     Indication: HYPERCHOLESTEROLAEMIA
     Dates: start: 20021216
  9. PREDNISONE TAB [Concomitant]
     Indication: RHEUMATOID ARTHRITIS
     Dates: start: 20090730
  10. OMEPRAZOLE [Concomitant]
     Indication: GASTROINTESTINAL DISORDER THERAPY
     Dates: start: 20061027
  11. ARAVA [Concomitant]
     Indication: RHEUMATOID ARTHRITIS
     Route: 048
     Dates: start: 20090917
  12. ATORVASTATIN CALCIUM [Concomitant]
     Indication: HYPERTENSION
     Route: 048
  13. METFORMIN HYDROCHLORIDE [Concomitant]
     Indication: DIABETES MELLITUS
     Route: 048
     Dates: start: 20100807
  14. GOLIMUMAB [Suspect]
     Indication: RHEUMATOID ARTHRITIS
     Route: 058
     Dates: start: 20101008, end: 20110118
  15. TORSEMIDE [Concomitant]
     Indication: HYPERTENSION
     Dates: start: 20061018
  16. DIOSMIN [Concomitant]
     Indication: HYPERTENSION
     Dates: start: 20100801
  17. INDAPAMIDE [Concomitant]
     Indication: HYPERTENSION
     Dates: start: 19931130

REACTIONS (1)
  - BRAIN ABSCESS [None]
